FAERS Safety Report 26172763 (Version 1)
Quarter: 2025Q4

REPORT INFORMATION
  Report Type: Report from Study
  Country: BR (occurrence: BR)
  Receive Date: 20251218
  Receipt Date: 20251218
  Transmission Date: 20260117
  Serious: Yes (Hospitalization)
  Sender: BIOGEN
  Company Number: BR-BIOGEN-2095275

PATIENT
  Age: 41 Year
  Sex: Female
  Weight: 64 kg

DRUGS (3)
  1. TYSABRI [Suspect]
     Active Substance: NATALIZUMAB
     Indication: Multiple sclerosis
     Dates: start: 202211
  2. VITAMIN B12 [Concomitant]
     Active Substance: CYANOCOBALAMIN
     Indication: Multiple sclerosis
     Dosage: DOSE AND FREQUENCY NOT ASKED. THE PATIENT CONTINUES TO USE VITAMIN B12.
  3. VITAMIN D [Concomitant]
     Active Substance: VITAMIN D NOS
     Indication: Multiple sclerosis
     Dosage: DOSE AND FREQUENCY NOT ASKED. THE PATIENT CONTINUES TO USE VITAMIN D.

REACTIONS (1)
  - Mastoiditis [Recovered/Resolved]

NARRATIVE: CASE EVENT DATE: 20240601
